FAERS Safety Report 8180958-8 (Version None)
Quarter: 2012Q1

REPORT INFORMATION
  Report Type: 
  Country: None (occurrence: None)
  Receive Date: 20120302
  Receipt Date: 20120229
  Transmission Date: 20120608
  Serious: Yes (Hospitalization, Other)
  Sender: FDA-Public Use
  Company Number: US-PFIZER INC-2012031154

PATIENT
  Sex: Female
  Weight: 83.77 kg

DRUGS (13)
  1. CARBOPLATIN [Suspect]
     Indication: METASTATIC MALIGNANT MELANOMA
     Dosage: 565 MG, EVERY 3 WEEKS
     Route: 042
     Dates: start: 20111020, end: 20111020
  2. BENADRYL [Concomitant]
     Dosage: UNK
  3. MEGACE [Suspect]
     Dosage: 5 CC, 1X/DAY
     Route: 048
     Dates: start: 20111128
  4. ZOFRAN [Concomitant]
     Dosage: 8 MG, AS NEEDED  EVERY 8 HOURS
     Dates: start: 20110501
  5. AXITINIB [Suspect]
     Indication: METASTATIC MALIGNANT MELANOMA
     Dosage: 3 MG, 2X/DAY,1 DF
     Route: 048
     Dates: start: 20110628
  6. METOPROLOL TARTRATE [Suspect]
     Indication: HYPERTENSION
     Dosage: 25 MG, 1X/DAY
     Route: 048
     Dates: start: 20110916, end: 20111012
  7. WELLBUTRIN [Concomitant]
     Dosage: 200 MG, 2X/DAY
     Dates: start: 20030101
  8. CELEBREX [Suspect]
     Indication: ARTHRITIS
     Dosage: 200 MG, 1X/DAY
     Route: 048
     Dates: start: 20070101, end: 20111101
  9. MS CONTIN [Concomitant]
     Dosage: 15 MG, 2X/DAY, AS NEEDED
     Dates: start: 20110711
  10. PACLITAXEL [Suspect]
     Indication: METASTATIC MALIGNANT MELANOMA
     Dosage: 215 MG, EVERY 3 WEEKS
     Route: 042
     Dates: start: 20111020, end: 20111020
  11. PREMPRO [Suspect]
     Indication: ARTHRITIS
     Dosage: 0.625 MG/2.5 MG, QD
     Route: 048
     Dates: start: 20070101
  12. CELEBREX [Suspect]
     Dosage: 200 MG, 1X/DAY
     Route: 048
  13. MEGACE [Suspect]
     Indication: DECREASED APPETITE
     Dosage: 5CC, QD
     Route: 048
     Dates: start: 20110927, end: 20111004

REACTIONS (2)
  - ANAEMIA [None]
  - VAGINAL HAEMORRHAGE [None]
